FAERS Safety Report 11088144 (Version 2)
Quarter: 2015Q2

REPORT INFORMATION
  Report Type: Spontaneous
  Country: DE (occurrence: DE)
  Receive Date: 20150504
  Receipt Date: 20150506
  Transmission Date: 20150821
  Serious: Yes (Congenital Anomaly, Other)
  Sender: FDA-Public Use
  Company Number: DE-PFIZER INC-2015145359

PATIENT

DRUGS (5)
  1. QUETIAPINE [Concomitant]
     Active Substance: QUETIAPINE
     Indication: SLEEP DISORDER
     Dosage: 50 MG, AS NEEDED
     Route: 064
     Dates: start: 201503, end: 20150311
  2. QUETIAPIN [Suspect]
     Active Substance: QUETIAPINE
     Indication: DEPRESSION
     Dosage: 300 MG, UNK
     Route: 064
     Dates: start: 201403, end: 201409
  3. QUETIAPIN [Suspect]
     Active Substance: QUETIAPINE
     Dosage: 50 MG, UNK
     Route: 064
     Dates: end: 20150311
  4. SERTRALINE HCL [Suspect]
     Active Substance: SERTRALINE HYDROCHLORIDE
     Indication: DEPRESSION
     Dosage: 200 MG, ^ADMINISTRATION ONLY 50 MG IN MORNING^
     Route: 064
     Dates: start: 201403
  5. QUETIAPIN [Suspect]
     Active Substance: QUETIAPINE
     Dosage: 200 MG, UNK
     Route: 064
     Dates: start: 201410

REACTIONS (2)
  - Limb reduction defect [Not Recovered/Not Resolved]
  - Maternal exposure during pregnancy [Not Recovered/Not Resolved]

NARRATIVE: CASE EVENT DATE: 2015
